FAERS Safety Report 5190618-3 (Version None)
Quarter: 2006Q4

REPORT INFORMATION
  Report Type: 
  Country: None (occurrence: None)
  Receive Date: 20061222
  Receipt Date: 20061002
  Transmission Date: 20070319
  Serious: No
  Sender: FDA-Public Use
  Company Number: US-BRISTOL-MYERS SQUIBB COMPANY-13526819

PATIENT
  Age: 78 Year
  Sex: Female
  Weight: 61 kg

DRUGS (4)
  1. ORENCIA [Suspect]
     Indication: RHEUMATOID ARTHRITIS
     Route: 042
     Dates: start: 20060501
  2. PREDNISONE TAB [Concomitant]
  3. NEXIUM [Concomitant]
  4. ALBUTEROL [Concomitant]
     Route: 055

REACTIONS (4)
  - DYSPNOEA [None]
  - FALL [None]
  - FATIGUE [None]
  - URINE OUTPUT INCREASED [None]
